FAERS Safety Report 10702461 (Version 1)
Quarter: 2015Q1

REPORT INFORMATION
  Report Type: Spontaneous
  Country: US (occurrence: US)
  Receive Date: 20150109
  Receipt Date: 20150109
  Transmission Date: 20150721
  Serious: Yes (Other)
  Sender: FDA-Public Use
  Company Number: US-SA-2015SA002429

PATIENT
  Age: 89 Year
  Sex: Female

DRUGS (1)
  1. ALLEGRA [Suspect]
     Active Substance: FEXOFENADINE HYDROCHLORIDE
     Dosage: TOOK TWO TEASPOON FULL OF THE ALLEGRA AFTER SUPPER
     Route: 065

REACTIONS (6)
  - Eye pruritus [Unknown]
  - Tremor [Unknown]
  - Headache [Unknown]
  - Sinusitis [Unknown]
  - Dyspnoea [Unknown]
  - Nasal dryness [Unknown]
